FAERS Safety Report 4795249-2 (Version None)
Quarter: 2005Q4

REPORT INFORMATION
  Report Type: 
  Country: None (occurrence: None)
  Receive Date: 20051012
  Receipt Date: 20051004
  Transmission Date: 20060501
  Serious: Yes (Death, Hospitalization)
  Sender: FDA-Public Use
  Company Number: US-JNJFOC-20050902538

PATIENT
  Age: 49 Year
  Sex: Female

DRUGS (4)
  1. ACETAMINOPHEN [Suspect]
     Route: 048
  2. ACETAMINOPHEN [Suspect]
     Indication: SUICIDE ATTEMPT
     Route: 048
  3. ACETAMINOPHEN/CODEINE [Suspect]
     Indication: SUICIDE ATTEMPT
     Route: 048
  4. DIPHENHYDRAMINE HCL [Suspect]
     Indication: SUICIDE ATTEMPT
     Route: 048

REACTIONS (5)
  - CARDIO-RESPIRATORY ARREST [None]
  - COMA [None]
  - COMPLETED SUICIDE [None]
  - HEPATIC FUNCTION ABNORMAL [None]
  - INTENTIONAL DRUG MISUSE [None]
